FAERS Safety Report 6057512-7 (Version None)
Quarter: 2009Q1

REPORT INFORMATION
  Report Type: 
  Country: None (occurrence: None)
  Receive Date: 20090127
  Receipt Date: 20090127
  Transmission Date: 20090719
  Serious: Yes (Hospitalization)
  Sender: FDA-Public Use
  Company Number: None

PATIENT
  Age: 72 Year
  Sex: Female
  Weight: 74.8435 kg

DRUGS (5)
  1. PRAMOXINE-HCL CREAM IN 7.5 OZ DI 1% CVS [Suspect]
     Indication: PRURITUS GENERALISED
     Dosage: NO LIMIT SPECIFIED ONCE DAILY CUTANEOUS
     Route: 003
     Dates: start: 20090124, end: 20090125
  2. CALCIUM [Concomitant]
  3. VITAMINS [Concomitant]
  4. MEVACOR [Concomitant]
  5. HRT [Concomitant]

REACTIONS (2)
  - CHEST DISCOMFORT [None]
  - DYSPNOEA [None]
